FAERS Safety Report 8130231-9 (Version None)
Quarter: 2012Q1

REPORT INFORMATION
  Report Type: 
  Country: None (occurrence: None)
  Receive Date: 20120210
  Receipt Date: 20120203
  Transmission Date: 20120608
  Serious: Yes (Hospitalization)
  Sender: FDA-Public Use
  Company Number: PHHY2011US52717

PATIENT
  Sex: Male

DRUGS (3)
  1. EXJADE [Suspect]
     Dosage: 1000 MG, DAILY
     Route: 048
  2. DESOGEN [Concomitant]
     Indication: MYELODYSPLASTIC SYNDROME
     Dosage: 40 MG, UNK
  3. EXJADE [Suspect]
     Indication: IRON OVERLOAD
     Dosage: 1500 MG, QD
     Route: 048

REACTIONS (3)
  - DEEP VEIN THROMBOSIS [None]
  - HYPERSOMNIA [None]
  - MALAISE [None]
